FAERS Safety Report 13286162 (Version 4)
Quarter: 2017Q2

REPORT INFORMATION
  Report Type: Report from Study
  Country: US (occurrence: US)
  Receive Date: 20170301
  Receipt Date: 20170420
  Transmission Date: 20170830
  Serious: Yes (Hospitalization)
  Sender: FDA-Public Use
  Company Number: US-ACTELION-A-US2016-142089

PATIENT
  Age: 32 Year
  Sex: Female
  Weight: 45.35 kg

DRUGS (10)
  1. ADCIRCA [Concomitant]
     Active Substance: TADALAFIL
  2. LETAIRIS [Concomitant]
     Active Substance: AMBRISENTAN
  3. LASIX [Concomitant]
     Active Substance: FUROSEMIDE
     Dosage: 40 MG, QAM
  4. VELETRI [Suspect]
     Active Substance: EPOPROSTENOL
     Indication: PULMONARY ARTERIAL HYPERTENSION
     Dosage: 6.5 NG/KG, PER MIN
     Route: 042
  5. VELETRI [Suspect]
     Active Substance: EPOPROSTENOL
     Dosage: 5 NG/KG, PER MIN
     Route: 042
     Dates: start: 20160901
  6. VELETRI [Suspect]
     Active Substance: EPOPROSTENOL
     Dosage: 7.5 NG/KG, PER MIN
     Route: 042
  7. VELETRI [Suspect]
     Active Substance: EPOPROSTENOL
     Dosage: UNK
     Route: 042
     Dates: start: 2016
  8. XARELTO [Concomitant]
     Active Substance: RIVAROXABAN
  9. LASIX [Concomitant]
     Active Substance: FUROSEMIDE
     Dosage: 60 MG, QPM
  10. AMLODIPINE [Concomitant]
     Active Substance: AMLODIPINE BESYLATE

REACTIONS (9)
  - Sinusitis [Unknown]
  - Dyspnoea [Unknown]
  - Staphylococcal sepsis [Unknown]
  - Oedema [Unknown]
  - Upper respiratory tract infection [Unknown]
  - Device related infection [Unknown]
  - Headache [Unknown]
  - Catheter management [Unknown]
  - Night sweats [Not Recovered/Not Resolved]

NARRATIVE: CASE EVENT DATE: 20160903
